FAERS Safety Report 25993960 (Version 2)
Quarter: 2025Q4

REPORT INFORMATION
  Report Type: Spontaneous
  Country: US (occurrence: US)
  Receive Date: 20251104
  Receipt Date: 20251204
  Transmission Date: 20260118
  Serious: No
  Sender: GRANULES PHARMACEUTICALS INC
  Company Number: US-GRANULES-US-2025GRASPO00581

PATIENT
  Age: 85 Year
  Sex: Male

DRUGS (1)
  1. FEXOFENADINE HYDROCHLORIDE [Suspect]
     Active Substance: FEXOFENADINE HYDROCHLORIDE
     Indication: Rhinorrhoea
     Route: 065

REACTIONS (1)
  - Drug ineffective [Unknown]
